FAERS Safety Report 17839426 (Version 1)
Quarter: 2020Q2

REPORT INFORMATION
  Report Type: Report from Study
  Country: None (occurrence: CZ)
  Receive Date: 20200529
  Receipt Date: 20200529
  Transmission Date: 20200714
  Serious: Yes (Other)
  Sender: FDA-Public Use
  Company Number: CZ-ABBVIE-20K-217-3422275-00

PATIENT
  Age: 67 Year
  Sex: Female

DRUGS (1)
  1. HUMIRA [Suspect]
     Active Substance: ADALIMUMAB
     Indication: RHEUMATOID ARTHRITIS
     Route: 058
     Dates: start: 20121220, end: 20200316

REACTIONS (2)
  - Mycobacterium tuberculosis complex test positive [Recovering/Resolving]
  - Latent tuberculosis [Recovering/Resolving]

NARRATIVE: CASE EVENT DATE: 20200320
